FAERS Safety Report 9283096 (Version 1)
Quarter: 2013Q2

REPORT INFORMATION
  Report Type: Report from Study
  Country: CZ (occurrence: CZ)
  Receive Date: 20130510
  Receipt Date: 20130510
  Transmission Date: 20140414
  Serious: Yes (Hospitalization)
  Sender: FDA-Public Use
  Company Number: CZ-ABBOTT-13P-217-1086389-00

PATIENT
  Age: 59 Year
  Sex: Female

DRUGS (1)
  1. HUMIRA [Suspect]
     Indication: PRODUCT USED FOR UNKNOWN INDICATION
     Dosage: DRUG INTERRUPTED FOR 2 WEEKS
     Route: 058
     Dates: end: 20121107

REACTIONS (2)
  - Radicular syndrome [Recovering/Resolving]
  - Intervertebral disc disorder [Recovering/Resolving]
